FAERS Safety Report 7895645-0 (Version None)
Quarter: 2011Q4

REPORT INFORMATION
  Report Type: 
  Country: None (occurrence: None)
  Receive Date: 20111104
  Receipt Date: 20111104
  Transmission Date: 20120403
  Serious: Yes (Life-Threatening, Hospitalization)
  Sender: FDA-Public Use
  Company Number: None

PATIENT
  Age: 60 Year
  Sex: Male
  Weight: 49.8957 kg

DRUGS (2)
  1. PILOCARPINE [Suspect]
     Indication: SURGERY
     Dates: start: 20110421, end: 20110422
  2. PILOCARPINE [Suspect]
     Indication: SURGERY
     Dates: start: 20110421, end: 20110422

REACTIONS (3)
  - ALLERGY TEST POSITIVE [None]
  - POST PROCEDURAL COMPLICATION [None]
  - ANAPHYLACTIC REACTION [None]
